FAERS Safety Report 7933713-5 (Version None)
Quarter: 2011Q4

REPORT INFORMATION
  Report Type: 
  Country: None (occurrence: None)
  Receive Date: 20111122
  Receipt Date: 20111109
  Transmission Date: 20120403
  Serious: Yes (Other)
  Sender: FDA-Public Use
  Company Number: PHHY2011BR098910

PATIENT
  Age: 85 Year
  Sex: Female
  Weight: 52 kg

DRUGS (9)
  1. INDAPAMIDE [Concomitant]
     Indication: CARDIAC DISORDER
     Dosage: 1 DF, QD
  2. SERTRALINE HYDROCHLORIDE [Concomitant]
     Dosage: 1 DF DAILY
  3. SIMVASTATIN [Concomitant]
     Indication: BLOOD CHOLESTEROL INCREASED
     Dosage: 1 DF, QD
  4. VERAPAMIL [Concomitant]
     Dosage: 1 DF, BID
  5. CLOZAPINE [Suspect]
  6. EXELON [Suspect]
     Dosage: 9 MG/5CM^2 (1 PATCH DAILY)
     Route: 062
     Dates: start: 20110601
  7. EXELON [Suspect]
     Dosage: 18 MG/10CM^2 (1 PATCH DAILY)
     Route: 062
  8. LORAX [Concomitant]
     Indication: INSOMNIA
     Dosage: 1 DF, DAILY
  9. RAPASINA [Concomitant]
     Indication: PSYCHOTIC DISORDER
     Dosage: UNK UKN, UNK

REACTIONS (6)
  - AGGRESSION [None]
  - PAIN [None]
  - AGITATION [None]
  - DRUG INEFFECTIVE [None]
  - AMNESIA [None]
  - DISORIENTATION [None]
